FAERS Safety Report 7485684-6 (Version None)
Quarter: 2011Q2

REPORT INFORMATION
  Report Type: 
  Country: None (occurrence: None)
  Receive Date: 20110517
  Receipt Date: 20100701
  Transmission Date: 20111010
  Serious: No
  Sender: FDA-Public Use
  Company Number: US-PFIZER INC-2010058144

PATIENT
  Age: 44 Year
  Sex: Female

DRUGS (1)
  1. NICOTROL [Suspect]
     Indication: NICOTINE DEPENDENCE
     Dosage: UNK, 6-16 CARTRIDGES, 1X/DAY
     Dates: start: 20100503, end: 20100513

REACTIONS (3)
  - BURNING SENSATION [None]
  - PRODUCT QUALITY ISSUE [None]
  - COUGH [None]
